FAERS Safety Report 5715808-X (Version None)
Quarter: 2008Q2

REPORT INFORMATION
  Report Type: 
  Country: None (occurrence: None)
  Receive Date: 20080424
  Receipt Date: 20080422
  Transmission Date: 20081010
  Serious: Yes (Hospitalization)
  Sender: FDA-Public Use
  Company Number: US-BRISTOL-MYERS SQUIBB COMPANY-14162036

PATIENT
  Age: 47 Year
  Sex: Male

DRUGS (2)
  1. MAXIPIME [Suspect]
     Route: 042
  2. OXYBUTYNIN CHLORIDE [Concomitant]

REACTIONS (4)
  - APHASIA [None]
  - APOPTOSIS [None]
  - DYSARTHRIA [None]
  - HALLUCINATION [None]
